FAERS Safety Report 25676769 (Version 1)
Quarter: 2025Q3

REPORT INFORMATION
  Report Type: Spontaneous
  Country: US (occurrence: None)
  Receive Date: 20250812
  Receipt Date: 20250812
  Transmission Date: 20251020
  Serious: Yes (Life-Threatening, Hospitalization, Disabling)
  Sender: FDA-CTU
  Company Number: None

PATIENT
  Age: 45 Year
  Sex: Female
  Weight: 62.1 kg

DRUGS (1)
  1. SYNTHROID [Suspect]
     Active Substance: LEVOTHYROXINE SODIUM
     Indication: Autoimmune thyroiditis
     Route: 048
     Dates: start: 20250101

REACTIONS (1)
  - Cerebral haemorrhage [None]

NARRATIVE: CASE EVENT DATE: 20250723
